FAERS Safety Report 4352394-3 (Version None)
Quarter: 2004Q2

REPORT INFORMATION
  Report Type: 
  Country: None (occurrence: None)
  Receive Date: 20040504
  Receipt Date: 20040415
  Transmission Date: 20050107
  Serious: Yes (Death)
  Sender: FDA-Public Use
  Company Number: 200411345JP

PATIENT
  Age: 33 Year
  Sex: Male

DRUGS (5)
  1. LANTUS [Suspect]
     Indication: DIABETES MELLITUS INSULIN-DEPENDENT
     Route: 058
     Dates: start: 20040201
  2. OPTIPEN (INSULIN PUMP) [Suspect]
  3. INSULIN LISPRO [Concomitant]
     Indication: DIABETES MELLITUS INSULIN-DEPENDENT
     Dosage: DOSE UNIT: UNITS
  4. PENFILL R [Concomitant]
     Indication: DIABETES MELLITUS INSULIN-DEPENDENT
  5. NPH INSULIN [Concomitant]
     Indication: DIABETES MELLITUS INSULIN-DEPENDENT
     Dosage: DOSE: 17~18; DOSE UNIT: UNITS
     Route: 058
     Dates: end: 20040201

REACTIONS (1)
  - MYOCARDIAL INFARCTION [None]
